FAERS Safety Report 8569227-1 (Version None)
Quarter: 2012Q3

REPORT INFORMATION
  Report Type: 
  Country: None (occurrence: None)
  Receive Date: 20120803
  Receipt Date: 20120319
  Transmission Date: 20120928
  Serious: No
  Sender: FDA-Public Use
  Company Number: US-ABBOTT-12P-163-0916786-00

PATIENT
  Sex: Female
  Weight: 59.928 kg

DRUGS (7)
  1. ATORVASTATIN [Suspect]
     Indication: PRODUCT USED FOR UNKNOWN INDICATION
     Dosage: GERNERIC NIASPAN
     Dates: start: 20111201, end: 20120101
  2. NIASPAN [Suspect]
     Dosage: IN THE MORNING
  3. NIASPAN [Suspect]
     Dates: start: 20120101
  4. ENALAPRIL MALEATE [Concomitant]
     Indication: PRODUCT USED FOR UNKNOWN INDICATION
  5. ZETIA [Concomitant]
     Indication: PRODUCT USED FOR UNKNOWN INDICATION
  6. NIASPAN [Suspect]
     Indication: PRODUCT USED FOR UNKNOWN INDICATION
     Dosage: AT BEDTIME
     Dates: end: 20111201
  7. ASPIRIN [Concomitant]
     Indication: PRODUCT USED FOR UNKNOWN INDICATION

REACTIONS (5)
  - PARAESTHESIA [None]
  - PRURITUS [None]
  - SWELLING [None]
  - FLUSHING [None]
  - MUSCLE DISORDER [None]
